FAERS Safety Report 4619951-8 (Version None)
Quarter: 2005Q1

REPORT INFORMATION
  Report Type: 
  Country: None (occurrence: None)
  Receive Date: 20050324
  Receipt Date: 20050314
  Transmission Date: 20050727
  Serious: Yes (Other)
  Sender: FDA-Public Use
  Company Number: CIP05000626

PATIENT
  Age: 60 Year
  Sex: Male

DRUGS (3)
  1. ASACOL [Suspect]
     Indication: CROHN'S DISEASE
     Dosage: SEE IMAGE
     Route: 048
  2. ASACOL [Suspect]
     Indication: CROHN'S DISEASE
     Dosage: SEE IMAGE
     Route: 048
  3. ARISTOLOCHIC ACID (ARISTOLOCHIC ACID) [Suspect]
     Dosage: 6.7 G FOR 10 DAYS CYCLIC; 2 CYC PER MOS/6 MO

REACTIONS (6)
  - BLADDER CANCER [None]
  - HAEMATURIA [None]
  - HAEMODIALYSIS [None]
  - NEPHRITIS INTERSTITIAL [None]
  - RENAL FAILURE CHRONIC [None]
  - URINARY BLADDER POLYP [None]
